FAERS Safety Report 4808377-X (Version None)
Quarter: 2005Q4

REPORT INFORMATION
  Report Type: 
  Country: None (occurrence: None)
  Receive Date: 20051021
  Receipt Date: 20040113
  Transmission Date: 20060501
  Serious: No
  Sender: FDA-Public Use
  Company Number: FR_040103413

PATIENT
  Age: 44 Year
  Sex: Female

DRUGS (3)
  1. ZYPREXA [Suspect]
     Indication: MAJOR DEPRESSION
     Dosage: 5 MG/1 DAY
     Dates: start: 20020101, end: 20040115
  2. CITALOPRAM HYDROBROMIDE [Concomitant]
  3. VALPROATE SODIUM [Concomitant]

REACTIONS (3)
  - LEUKOCYTOSIS [None]
  - MONOCYTOSIS [None]
  - PYREXIA [None]
